FAERS Safety Report 8152725-2 (Version None)
Quarter: 2012Q1

REPORT INFORMATION
  Report Type: 
  Country: None (occurrence: None)
  Receive Date: 20120221
  Receipt Date: 20120215
  Transmission Date: 20120608
  Serious: Yes (Hospitalization)
  Sender: FDA-Public Use
  Company Number: DE-AMGEN-DEUSP2012009861

PATIENT
  Age: 68 Year
  Sex: Female
  Weight: 75 kg

DRUGS (5)
  1. CINACALCET HYDROCHLORIDE [Suspect]
     Indication: HYPERPARATHYROIDISM SECONDARY
     Dosage: 30 MG, QD
     Route: 048
     Dates: start: 20110801, end: 20110901
  2. FERROUS SULFATE TAB [Concomitant]
     Indication: NEPHROGENIC ANAEMIA
     Dosage: UNK UNK, QD
  3. ATACAND [Concomitant]
     Indication: HYPERTENSION
     Dosage: 4 MG, QD
     Route: 048
  4. LASIX [Concomitant]
     Indication: POLYURIA
     Dosage: 375 MG, UNK
  5. RENVELA [Suspect]
     Indication: HYPERPHOSPHATAEMIA
     Dosage: UNK
     Route: 048
     Dates: start: 20110801, end: 20110901

REACTIONS (2)
  - GASTROOESOPHAGEAL REFLUX DISEASE [None]
  - DUODENAL ULCER [None]
